FAERS Safety Report 20199698 (Version 2)
Quarter: 2024Q1

REPORT INFORMATION
  Report Type: Spontaneous
  Country: US (occurrence: US)
  Receive Date: 20211217
  Receipt Date: 20240201
  Transmission Date: 20240409
  Serious: No
  Sender: FDA-Public Use
  Company Number: US-NOVEN PHARMACEUTICALS, INC.-2020US007059

PATIENT
  Sex: Female
  Weight: 61.224 kg

DRUGS (1)
  1. ESTRADIOL [Suspect]
     Active Substance: ESTRADIOL
     Indication: Hysterectomy
     Dosage: UNK, UNK
     Route: 062

REACTIONS (2)
  - Application site hypersensitivity [Unknown]
  - Application site exfoliation [Unknown]
